FAERS Safety Report 14431799 (Version 2)
Quarter: 2018Q3

REPORT INFORMATION
  Report Type: Report from Study
  Country: JP (occurrence: JP)
  Receive Date: 20180124
  Receipt Date: 20180823
  Transmission Date: 20181010
  Serious: Yes (Death, Hospitalization, Other)
  Sender: FDA-Public Use
  Company Number: JP-009507513-1801JPN001904J

PATIENT
  Age: 49 Year
  Sex: Male
  Weight: 62 kg

DRUGS (1)
  1. KEYTRUDA [Suspect]
     Active Substance: PEMBROLIZUMAB
     Indication: TRANSITIONAL CELL CARCINOMA
     Dosage: 200 MG, Q3W
     Route: 041
     Dates: start: 20171229, end: 20171229

REACTIONS (5)
  - Malignant neoplasm progression [Fatal]
  - Decreased appetite [Not Recovered/Not Resolved]
  - Gastrointestinal haemorrhage [Fatal]
  - Sepsis [Recovering/Resolving]
  - Pyelonephritis [Recovering/Resolving]

NARRATIVE: CASE EVENT DATE: 20180101
